FAERS Safety Report 7947092-0 (Version None)
Quarter: 2011Q4

REPORT INFORMATION
  Report Type: 
  Country: None (occurrence: None)
  Receive Date: 20111129
  Receipt Date: 20111116
  Transmission Date: 20120403
  Serious: Yes (Hospitalization, Other)
  Sender: FDA-Public Use
  Company Number: US-BAYER-2011-112628

PATIENT
  Sex: Female

DRUGS (1)
  1. BETASERON [Suspect]
     Indication: MULTIPLE SCLEROSIS
     Dosage: UNK
     Dates: start: 20101101

REACTIONS (6)
  - DELIRIUM [None]
  - DYSPNOEA [None]
  - BACTERIAL INFECTION [None]
  - GENERAL PHYSICAL HEALTH DETERIORATION [None]
  - CARDIAC DISORDER [None]
  - INFECTION [None]
